FAERS Safety Report 15612961 (Version 1)
Quarter: 2018Q4

REPORT INFORMATION
  Report Type: Spontaneous
  Country: IT (occurrence: IT)
  Receive Date: 20181113
  Receipt Date: 20181113
  Transmission Date: 20190205
  Serious: Yes (Hospitalization)
  Sender: FDA-Public Use
  Company Number: IT-PFIZER INC-2018462241

PATIENT
  Age: 80 Year
  Sex: Male

DRUGS (10)
  1. LASIX [Concomitant]
     Active Substance: FUROSEMIDE
     Dosage: 125 MG, UNK
     Route: 048
  2. TAVOR (LORAZEPAM) [Suspect]
     Active Substance: LORAZEPAM
     Route: 048
     Dates: start: 20180615
  3. CALCIUM CARBONATE. [Concomitant]
     Active Substance: CALCIUM CARBONATE
     Dosage: 1 G, UNK
     Route: 048
  4. RANITIDINE. [Concomitant]
     Active Substance: RANITIDINE
     Dosage: 150 MG, UNK
     Route: 048
  5. CONGESCOR [Concomitant]
     Active Substance: BISOPROLOL
     Dosage: 2.5 MG, UNK
     Route: 048
  6. HUMALOG [Concomitant]
     Active Substance: INSULIN LISPRO
  7. TORVAST [Concomitant]
     Active Substance: ATORVASTATIN
     Dosage: 40 MG, UNK
     Route: 048
  8. LANTUS [Concomitant]
     Active Substance: INSULIN GLARGINE
  9. PLAVIX [Concomitant]
     Active Substance: CLOPIDOGREL BISULFATE
     Dosage: 75 MG, UNK
     Route: 048
  10. LORTAAN [Concomitant]
     Active Substance: LOSARTAN POTASSIUM
     Route: 048

REACTIONS (2)
  - Confusional state [Recovering/Resolving]
  - Disorientation [Recovering/Resolving]

NARRATIVE: CASE EVENT DATE: 20180616
